FAERS Safety Report 5815956-X (Version None)
Quarter: 2008Q3

REPORT INFORMATION
  Report Type: 
  Country: None (occurrence: None)
  Receive Date: 20080721
  Receipt Date: 20080709
  Transmission Date: 20090109
  Serious: Yes (Other)
  Sender: FDA-Public Use
  Company Number: PHBS2008US05146

PATIENT
  Sex: Male

DRUGS (3)
  1. METHYLPHENIDATE HCL [Suspect]
  2. CARBAMAZEPINE [Suspect]
     Indication: COMPLEX PARTIAL SEIZURES
  3. CARBAMAZEPINE [Suspect]
     Indication: PETIT MAL EPILEPSY

REACTIONS (14)
  - ALCOHOL ABUSE [None]
  - ALTERED VISUAL DEPTH PERCEPTION [None]
  - ANGER [None]
  - BELLIGERENCE [None]
  - CENTRAL AUDITORY PROCESSING DISORDER [None]
  - DISTRACTIBILITY [None]
  - DISTURBANCE IN SOCIAL BEHAVIOUR [None]
  - DRUG ABUSE [None]
  - DYSPHEMIA [None]
  - INTELLIGENCE TEST ABNORMAL [None]
  - IRRITABILITY [None]
  - MIXED RECEPTIVE-EXPRESSIVE LANGUAGE DISORDER [None]
  - MOOD SWINGS [None]
  - NEUROLOGICAL EXAMINATION ABNORMAL [None]
